FAERS Safety Report 23271644 (Version 2)
Quarter: 2023Q4

REPORT INFORMATION
  Report Type: Report from Study
  Country: TR (occurrence: TR)
  Receive Date: 20231207
  Receipt Date: 20231214
  Transmission Date: 20240110
  Serious: Yes (Death, Hospitalization)
  Sender: FDA-Public Use
  Company Number: TR-Merck Healthcare KGaA-2023490867

PATIENT
  Age: 73 Year
  Sex: Male
  Weight: 93 kg

DRUGS (1)
  1. AVELUMAB [Suspect]
     Active Substance: AVELUMAB
     Indication: Bladder cancer
     Route: 042
     Dates: start: 20230908

REACTIONS (1)
  - Pneumonia [Fatal]

NARRATIVE: CASE EVENT DATE: 20231031
